FAERS Safety Report 9068951 (Version 1)
Quarter: 2013Q1

REPORT INFORMATION
  Report Type: Report from Study
  Country: PL (occurrence: PL)
  Receive Date: 20130128
  Receipt Date: 20130128
  Transmission Date: 20140127
  Serious: Yes (Death)
  Sender: FDA-Public Use
  Company Number: PHHO2013PL001452

PATIENT
  Age: 71 Year
  Sex: Male
  Weight: 67 kg

DRUGS (8)
  1. ALISKIREN [Suspect]
     Indication: CARDIAC FAILURE
     Dosage: UNK
     Route: 048
     Dates: start: 20110315
  2. ENALAPRIL [Suspect]
     Indication: CARDIAC FAILURE
     Dosage: UNK
     Route: 048
     Dates: start: 20110315
  3. WARFARIN [Concomitant]
     Indication: ATRIAL FIBRILLATION
     Dosage: INR
     Dates: start: 20110125, end: 20120808
  4. INSULIN [Concomitant]
     Indication: DIABETES MELLITUS
     Dosage: 14 - 0- 22
     Dates: end: 20120808
  5. FUROSEMIDUM//FUROSEMIDE [Concomitant]
     Indication: CARDIAC FAILURE
     Dosage: 40-0-0 MG
     Dates: start: 20091221, end: 20120808
  6. SIMVASTATINUM ACCORD [Concomitant]
     Indication: CORONARY ARTERY DISEASE
     Dosage: 0-0-20 MG
     Dates: end: 20120808
  7. COROTREND [Concomitant]
     Indication: CARDIAC FAILURE
     Dosage: 12.5 - 0 -12.5 MG
     Dates: end: 20120808
  8. CARDURAN [Concomitant]
     Dosage: 20 -0 -20 MG
     Dates: start: 201207, end: 20120808

REACTIONS (1)
  - Death [Fatal]
